FAERS Safety Report 24781718 (Version 1)
Quarter: 2024Q4

REPORT INFORMATION
  Report Type: Spontaneous
  Country: FR (occurrence: FR)
  Receive Date: 20241227
  Receipt Date: 20241227
  Transmission Date: 20250114
  Serious: Yes (Other)
  Sender: AUROBINDO
  Company Number: FR-AFSSAPS-AVLY2024000267

PATIENT
  Age: 33 Year
  Sex: Female

DRUGS (2)
  1. BROMAZEPAM [Suspect]
     Active Substance: BROMAZEPAM
     Indication: Product used for unknown indication
     Dosage: 15 MILLIGRAM (6 TO 8 TABLETS/DAY)
     Route: 048
  2. TRAMADOL [Suspect]
     Active Substance: TRAMADOL
     Indication: Product used for unknown indication
     Dosage: 700 MILLIGRAM, ONCE A DAY (600 TO 700MG/DAY)
     Route: 048

REACTIONS (1)
  - Drug dependence [Recovering/Resolving]
